FAERS Safety Report 24622050 (Version 2)
Quarter: 2024Q4

REPORT INFORMATION
  Report Type: Spontaneous
  Country: AR (occurrence: AR)
  Receive Date: 20241114
  Receipt Date: 20241202
  Transmission Date: 20250115
  Serious: Yes (Hospitalization)
  Sender: BIOMARIN
  Company Number: AR-BIOMARINAP-AR-2024-161779

PATIENT

DRUGS (1)
  1. VOXZOGO [Suspect]
     Active Substance: VOSORITIDE
     Indication: Osteochondrodysplasia
     Dosage: UNK UNK, QD
     Route: 058
     Dates: start: 20230929

REACTIONS (4)
  - Sinusitis [Recovered/Resolved]
  - Headache [Recovered/Resolved]
  - Vomiting [Recovered/Resolved]
  - Off label use [Unknown]

NARRATIVE: CASE EVENT DATE: 20240930
